FAERS Safety Report 21783646 (Version 1)
Quarter: 2022Q4

REPORT INFORMATION
  Report Type: Report from Study
  Country: US (occurrence: US)
  Receive Date: 20221227
  Receipt Date: 20221227
  Transmission Date: 20230113
  Serious: No
  Sender: FDA-Public Use
  Company Number: US-ABBVIE-4214196

PATIENT
  Age: 68 Year
  Sex: Male

DRUGS (1)
  1. HUMIRA [Suspect]
     Active Substance: ADALIMUMAB
     Indication: Product used for unknown indication
     Dosage: CITRATE FREE?FORM STRENGTH: 40 MILLIGRAM
     Route: 058
     Dates: start: 20221114

REACTIONS (1)
  - Arthritis [Recovered/Resolved]

NARRATIVE: CASE EVENT DATE: 20221119
